FAERS Safety Report 6444110-6 (Version None)
Quarter: 2009Q4

REPORT INFORMATION
  Report Type: 
  Country: None (occurrence: None)
  Receive Date: 20091118
  Receipt Date: 20091109
  Transmission Date: 20100525
  Serious: Yes (Other)
  Sender: FDA-Public Use
  Company Number: AU-ASTRAZENECA-2009SE24814

PATIENT
  Age: 75 Year
  Sex: Male
  Weight: 90 kg

DRUGS (2)
  1. CRESTOR [Suspect]
     Indication: METABOLIC DISORDER
     Route: 048
     Dates: start: 20080401, end: 20080414
  2. ANDROCUR [Concomitant]
     Route: 048
     Dates: start: 20080221

REACTIONS (2)
  - HEPATOCELLULAR INJURY [None]
  - RHABDOMYOLYSIS [None]
